FAERS Safety Report 22945002 (Version 2)
Quarter: 2023Q4

REPORT INFORMATION
  Report Type: Spontaneous
  Country: US (occurrence: US)
  Receive Date: 20230914
  Receipt Date: 20231027
  Transmission Date: 20240110
  Serious: Yes (Hospitalization)
  Sender: FDA-Public Use
  Company Number: US-PFIZER INC-PV202300152549

PATIENT
  Age: 69 Year
  Sex: Female

DRUGS (1)
  1. IBRANCE [Suspect]
     Active Substance: PALBOCICLIB
     Dosage: UNK

REACTIONS (6)
  - Cardiac failure congestive [Unknown]
  - Peripheral swelling [Unknown]
  - Arthralgia [Unknown]
  - Arthritis [Unknown]
  - Pain [Unknown]
  - Joint swelling [Unknown]
